FAERS Safety Report 9421118 (Version 3)
Quarter: 2013Q3

REPORT INFORMATION
  Report Type: Spontaneous
  Country: DK (occurrence: DK)
  Receive Date: 20130725
  Receipt Date: 20130821
  Transmission Date: 20140515
  Serious: Yes (Other)
  Sender: FDA-Public Use
  Company Number: PHHY2013DK076890

PATIENT
  Sex: Female

DRUGS (24)
  1. GEMCITABINE [Suspect]
     Indication: DISEASE PROGRESSION
  2. GEMCITABINE [Suspect]
  3. CARBOPLATIN [Suspect]
     Indication: DISEASE PROGRESSION
  4. CARBOPLATIN [Suspect]
     Indication: BREAST CANCER
  5. CARBOPLATIN [Suspect]
  6. METHOTREXATE [Suspect]
     Indication: BREAST CANCER
     Dates: start: 2003
  7. METHOTREXATE [Suspect]
     Dates: start: 2003
  8. 5-FLUOROURACIL [Suspect]
     Indication: BREAST CANCER
     Dates: start: 2003
  9. EPIRUBICIN [Suspect]
     Indication: BREAST CANCER
  10. EPIRUBICIN [Suspect]
     Dates: start: 2003
  11. EPIRUBICIN [Suspect]
     Dates: start: 2003
  12. VINORELBINE [Suspect]
     Indication: BREAST CANCER
  13. LAPATINIB [Suspect]
     Indication: DISEASE PROGRESSION
     Dates: start: 20100719, end: 201201
  14. HERCEPTIN [Suspect]
     Indication: DISEASE PROGRESSION
     Dates: start: 200701
  15. HERCEPTIN [Suspect]
     Indication: BREAST CANCER
  16. XELODA [Suspect]
     Indication: DISEASE PROGRESSION
     Dates: start: 200812
  17. XELODA [Suspect]
     Indication: BREAST CANCER
  18. TAXOTERE [Suspect]
     Indication: DISEASE PROGRESSION
     Dates: start: 200701
  19. TAXOTERE [Suspect]
     Indication: BREAST CANCER
  20. CYCLOPHOSPHAMIDE [Suspect]
     Indication: BREAST CANCER
  21. ERIBULIN [Suspect]
     Indication: DISEASE PROGRESSION
     Dates: start: 201201, end: 201301
  22. ERIBULIN [Suspect]
     Indication: BREAST CANCER
  23. CORODIL [Concomitant]
     Indication: PRODUCT USED FOR UNKNOWN INDICATION
  24. CORODIL [Concomitant]
     Indication: CARDIAC DISORDER

REACTIONS (2)
  - Cardiac disorder [Unknown]
  - Malignant neoplasm progression [Not Recovered/Not Resolved]
